FAERS Safety Report 4786360-0 (Version None)
Quarter: 2005Q3

REPORT INFORMATION
  Report Type: 
  Country: None (occurrence: None)
  Receive Date: 20050927
  Receipt Date: 20050815
  Transmission Date: 20060218
  Serious: No
  Sender: FDA-Public Use
  Company Number: USA0508105564

PATIENT
  Age: 61 Year
  Sex: Female

DRUGS (5)
  1. STRATTERA [Suspect]
     Indication: ATTENTION DEFICIT/HYPERACTIVITY DISORDER
     Dosage: 60 MG DAY
  2. ATENOLOL [Concomitant]
  3. LEXAPRO [Concomitant]
  4. HORMONES [Concomitant]
  5. WATER PILLS [Concomitant]

REACTIONS (1)
  - CATARACT [None]
